FAERS Safety Report 11441080 (Version 1)
Quarter: 2015Q3

REPORT INFORMATION
  Report Type: Spontaneous
  Country: None (occurrence: None)
  Receive Date: 20150831
  Receipt Date: 20150831
  Transmission Date: 20151125
  Serious: Yes (Death, Life-Threatening, Disabling)
  Sender: FDA-Public Use
  Company Number: None

PATIENT
  Age: 93 Year
  Sex: Female
  Weight: 39 kg

DRUGS (1)
  1. ESPIRONOLACTONA [Suspect]
     Active Substance: SPIRONOLACTONE

REACTIONS (9)
  - Eating disorder [None]
  - Aphonia [None]
  - Movement disorder [None]
  - Dysphagia [None]
  - Nervous system disorder [None]
  - Dysuria [None]
  - Swollen tongue [None]
  - Hypotonia [None]
  - Decreased appetite [None]
